FAERS Safety Report 21553243 (Version 2)
Quarter: 2022Q4

REPORT INFORMATION
  Report Type: Spontaneous
  Country: US (occurrence: US)
  Receive Date: 20221104
  Receipt Date: 20221107
  Transmission Date: 20230112
  Serious: No
  Sender: FDA-Public Use
  Company Number: US-GLAXOSMITHKLINE-USCH2022041517

PATIENT
  Age: 77 Year
  Sex: Female

DRUGS (1)
  1. VOLTAREN [Suspect]
     Active Substance: DICLOFENAC SODIUM
     Indication: Arthritis
     Dosage: 1 DOSAGE FORM, QD
     Route: 065

REACTIONS (2)
  - Inappropriate schedule of product administration [Unknown]
  - Product use issue [Unknown]
